FAERS Safety Report 23959763 (Version 4)
Quarter: 2024Q3

REPORT INFORMATION
  Report Type: Spontaneous
  Country: JP (occurrence: JP)
  Receive Date: 20240611
  Receipt Date: 20240730
  Transmission Date: 20241017
  Serious: Yes (Other)
  Sender: VERICEL
  Company Number: JP-VERICEL-JP-VCEL-23-000335

PATIENT
  Age: 28 Year
  Sex: Female
  Weight: 69.5 kg

DRUGS (1)
  1. BROMELAINS [Suspect]
     Active Substance: BROMELAINS
     Indication: Burns second degree
     Dosage: 25 GRAM
     Route: 061
     Dates: start: 20231018, end: 20231018

REACTIONS (5)
  - Application site necrosis [Recovered/Resolved]
  - Application site pain [Recovered/Resolved]
  - Skin graft detachment [Recovered/Resolved]
  - Pyrexia [Recovered/Resolved]
  - Wound infection [Recovered/Resolved]

NARRATIVE: CASE EVENT DATE: 20231018
